FAERS Safety Report 18989537 (Version 1)
Quarter: 2021Q1

REPORT INFORMATION
  Report Type: Spontaneous
  Country: US (occurrence: US)
  Receive Date: 20210310
  Receipt Date: 20210310
  Transmission Date: 20210420
  Serious: No
  Sender: FDA-Public Use
  Company Number: US-ALKEM LABORATORIES LIMITED-US-ALKEM-2021-00484

PATIENT
  Age: 8 Year
  Sex: Female

DRUGS (1)
  1. TACROLIMUS. [Suspect]
     Active Substance: TACROLIMUS
     Indication: VITILIGO
     Dosage: 0.1% BID
     Route: 061

REACTIONS (2)
  - Hypertrichosis [Unknown]
  - Hair growth abnormal [Unknown]
